FAERS Safety Report 20092895 (Version 3)
Quarter: 2022Q1

REPORT INFORMATION
  Report Type: Report from Study
  Country: GB (occurrence: GB)
  Receive Date: 20211120
  Receipt Date: 20220308
  Transmission Date: 20220423
  Serious: Yes (Life-Threatening, Hospitalization, Other)
  Sender: FDA-Public Use
  Company Number: GB-NOVARTISPH-NVSC2021GB255091

PATIENT
  Age: 59 Year
  Sex: Male
  Weight: 77 kg

DRUGS (2)
  1. ERELZI [Suspect]
     Active Substance: ETANERCEPT-SZZS
     Indication: Rheumatoid arthritis
     Dosage: UNK
     Route: 058
     Dates: start: 20180223
  2. ERELZI [Suspect]
     Active Substance: ETANERCEPT-SZZS
     Indication: Polychondritis

REACTIONS (8)
  - Peripheral arterial occlusive disease [Recovered/Resolved with Sequelae]
  - Infected skin ulcer [Recovered/Resolved with Sequelae]
  - Urinary tract infection [Recovered/Resolved with Sequelae]
  - Testicular swelling [Recovered/Resolved with Sequelae]
  - Pain [Recovered/Resolved with Sequelae]
  - Soft tissue infection [Recovered/Resolved]
  - Thrombosis [Not Recovered/Not Resolved]
  - Peripheral ischaemia [Recovered/Resolved]

NARRATIVE: CASE EVENT DATE: 20180426
